FAERS Safety Report 16025483 (Version 2)
Quarter: 2025Q3

REPORT INFORMATION
  Report Type: Spontaneous
  Country: EU (occurrence: EU)
  Receive Date: 20190302
  Receipt Date: 20250805
  Transmission Date: 20251021
  Serious: Yes (Life-Threatening)
  Sender: AUROBINDO
  Company Number: EU-AUROBINDO-AUR-APL-2019-011226

PATIENT
  Sex: Male

DRUGS (1)
  1. ACETAMINOPHEN [Suspect]
     Active Substance: ACETAMINOPHEN
     Indication: Product used for unknown indication
     Route: 065

REACTIONS (2)
  - Methaemoglobinaemia [Recovered/Resolved]
  - Toxicity to various agents [Unknown]
